FAERS Safety Report 15897020 (Version 2)
Quarter: 2021Q3

REPORT INFORMATION
  Report Type: Report from Study
  Country: JP (occurrence: JP)
  Receive Date: 20190131
  Receipt Date: 20210729
  Transmission Date: 20211014
  Serious: Yes (Death)
  Sender: FDA-Public Use
  Company Number: JP-MYLANLABS-2019M1008578

PATIENT

DRUGS (3)
  1. BORTEZOMIB. [Suspect]
     Active Substance: BORTEZOMIB
     Indication: PLASMA CELL MYELOMA
     Dosage: IN 3 WEEKLY DOSES; PART OF BORTEZOMIB, MELPHALAN AND PREDNISOLONE (MPB) REGIMEN
     Route: 065
  2. PREDNISOLONE. [Suspect]
     Active Substance: PREDNISOLONE
     Indication: PLASMA CELL MYELOMA
     Dosage: 60 MILLIGRAM/SQ. METER, CYCLE, DAYS 1?4 (4 WEEK CYCLE); PART OF BORTEZOMIB, MELPHALAN AND PREDNISOLO
     Route: 048
  3. MELPHALAN. [Suspect]
     Active Substance: MELPHALAN
     Indication: PLASMA CELL MYELOMA
     Dosage: 7 MILLIGRAM/SQ. METER, CYCLE, DAYS 1?4 (4 WEEK CYCLE); PART OF BORTEZOMIB, MELPHALAN AND PREDNISOLON
     Route: 065

REACTIONS (2)
  - Pneumonitis [Fatal]
  - Pneumocystis jirovecii pneumonia [Fatal]
